FAERS Safety Report 6547536-5 (Version None)
Quarter: 2010Q1

REPORT INFORMATION
  Report Type: 
  Country: None (occurrence: None)
  Receive Date: 20100122
  Receipt Date: 20100112
  Transmission Date: 20100710
  Serious: Yes (Death)
  Sender: FDA-Public Use
  Company Number: DE-GENENTECH-296747

PATIENT
  Sex: Female

DRUGS (1)
  1. RANIBIZUMAB [Suspect]
     Indication: MACULAR DEGENERATION
     Dosage: UNK
     Route: 031
     Dates: start: 20080711, end: 20090101

REACTIONS (3)
  - CEREBROVASCULAR ACCIDENT [None]
  - METAMORPHOPSIA [None]
  - VISUAL ACUITY REDUCED [None]
